FAERS Safety Report 11218451 (Version 1)
Quarter: 2015Q2

REPORT INFORMATION
  Report Type: Spontaneous
  Country: US (occurrence: None)
  Receive Date: 20150624
  Receipt Date: 20150624
  Transmission Date: 20150821
  Serious: No
  Sender: FDA-Public Use
  Company Number: None

PATIENT
  Age: 75 Year
  Sex: Female

DRUGS (1)
  1. GLEEVEC [Suspect]
     Active Substance: IMATINIB MESYLATE

REACTIONS (5)
  - Diarrhoea [None]
  - Muscle spasms [None]
  - Nausea [None]
  - Vomiting [None]
  - Abdominal distension [None]

NARRATIVE: CASE EVENT DATE: 20150622
